FAERS Safety Report 19265824 (Version 4)
Quarter: 2021Q2

REPORT INFORMATION
  Report Type: Spontaneous
  Country: JP (occurrence: JP)
  Receive Date: 20210518
  Receipt Date: 20210620
  Transmission Date: 20210717
  Serious: Yes (Death, Other)
  Sender: FDA-Public Use
  Company Number: JP-BRISTOL-MYERS SQUIBB COMPANY-BMS-2020-098583

PATIENT
  Age: 81 Year
  Sex: Male
  Weight: 59.9 kg

DRUGS (17)
  1. ALLOPURINOL. [Concomitant]
     Active Substance: ALLOPURINOL
     Indication: HYPERTENSION
     Dosage: 100 MILLIGRAM, QD
     Route: 048
     Dates: end: 20201112
  2. BEZAFIBRATE [Concomitant]
     Active Substance: BEZAFIBRATE
     Indication: MALIGNANT MELANOMA
     Dosage: 200 MILLIGRAM, QD
     Route: 048
     Dates: end: 20201112
  3. TENELIA [Concomitant]
     Active Substance: TENELIGLIPTIN
     Indication: MALIGNANT MELANOMA
  4. NARUSUS [Concomitant]
     Active Substance: HYDROMORPHONE HYDROCHLORIDE
     Indication: MALIGNANT MELANOMA
     Dosage: 2 MILLIGRAM, QD
     Route: 048
     Dates: start: 20201005, end: 20201031
  5. TAMSULOSIN HYDROCHLORIDE. [Concomitant]
     Active Substance: TAMSULOSIN HYDROCHLORIDE
     Indication: MALIGNANT MELANOMA
     Dosage: 0.2 MILLIGRAM, QD
     Route: 048
     Dates: end: 20201112
  6. YERVOY [Suspect]
     Active Substance: IPILIMUMAB
     Indication: MALIGNANT MELANOMA
     Dosage: 185 MILLIGRAM, ONE TIME DOSE
     Route: 041
     Dates: start: 20201007, end: 20201007
  7. OLMESARTAN [Concomitant]
     Active Substance: OLMESARTAN
     Indication: MALIGNANT MELANOMA
  8. OPDIVO [Suspect]
     Active Substance: NIVOLUMAB
     Indication: MALIGNANT MELANOMA
     Dosage: 80 MILLIGRAM, ONE TIME DOSE
     Route: 041
     Dates: start: 20201007, end: 20201007
  9. AMLODIPINE [Concomitant]
     Active Substance: AMLODIPINE BESYLATE
     Indication: MALIGNANT MELANOMA
  10. TENELIA [Concomitant]
     Active Substance: TENELIGLIPTIN
     Indication: DIABETES MELLITUS
     Dosage: 20 MILLIGRAM, QD
     Route: 048
     Dates: end: 20201112
  11. OPDIVO [Suspect]
     Active Substance: NIVOLUMAB
     Dosage: UNK
     Route: 041
     Dates: start: 20201028
  12. OPDIVO [Suspect]
     Active Substance: NIVOLUMAB
     Dosage: UNK
     Route: 041
     Dates: start: 20201125
  13. PARIET [Concomitant]
     Active Substance: RABEPRAZOLE SODIUM
     Indication: MALIGNANT MELANOMA
     Dosage: 10 MILLIGRAM, QD
     Route: 048
     Dates: end: 20201112
  14. OPDIVO [Suspect]
     Active Substance: NIVOLUMAB
     Dosage: UNK
     Route: 041
     Dates: start: 20201111
  15. AMLODIPINE [Concomitant]
     Active Substance: AMLODIPINE BESYLATE
     Indication: HYPERTENSION
     Dosage: 2.5 MILLIGRAM, QD
     Route: 048
     Dates: end: 20201015
  16. ALLOPURINOL. [Concomitant]
     Active Substance: ALLOPURINOL
     Indication: MALIGNANT MELANOMA
  17. OLMESARTAN [Concomitant]
     Active Substance: OLMESARTAN
     Indication: HYPERTENSION
     Dosage: 20 MILLIGRAM, QD
     Route: 048
     Dates: end: 20201112

REACTIONS (4)
  - Decreased appetite [Not Recovered/Not Resolved]
  - Pneumonitis [Fatal]
  - Malaise [Not Recovered/Not Resolved]
  - Malignant neoplasm progression [Fatal]

NARRATIVE: CASE EVENT DATE: 20201009
